FAERS Safety Report 21504159 (Version 1)
Quarter: 2022Q4

REPORT INFORMATION
  Report Type: Spontaneous
  Country: CA (occurrence: CA)
  Receive Date: 20221025
  Receipt Date: 20221025
  Transmission Date: 20230113
  Serious: Yes (Other)
  Sender: FDA-Public Use
  Company Number: CA-PFIZER INC-202201099306

PATIENT
  Age: 45 Year
  Sex: Male
  Weight: 103 kg

DRUGS (5)
  1. XELJANZ XR [Suspect]
     Active Substance: TOFACITINIB CITRATE
     Indication: Rheumatoid arthritis
     Dosage: 11 MG 1X/DAY
     Route: 048
     Dates: start: 20220818, end: 202208
  2. XELJANZ XR [Suspect]
     Active Substance: TOFACITINIB CITRATE
     Dosage: 11 MG 1X/DAY
     Route: 048
     Dates: start: 20220818, end: 20221013
  3. XELJANZ XR [Suspect]
     Active Substance: TOFACITINIB CITRATE
     Dosage: 11 MG, 1X/DAY
     Route: 048
     Dates: start: 20220906, end: 2022
  4. HYDROXYCHLOROQUINE [Concomitant]
     Active Substance: HYDROXYCHLOROQUINE
     Dosage: 1 DF
     Route: 065
  5. SULFASALAZINE [Concomitant]
     Active Substance: SULFASALAZINE
     Dosage: 1 DF
     Route: 065

REACTIONS (11)
  - Fatigue [Unknown]
  - Malaise [Unknown]
  - Condition aggravated [Unknown]
  - Feeling abnormal [Recovered/Resolved]
  - Fatigue [Unknown]
  - Feeling drunk [Recovered/Resolved]
  - Impaired work ability [Recovered/Resolved]
  - Dysstasia [Recovered/Resolved]
  - Drug intolerance [Unknown]
  - Arthralgia [Recovering/Resolving]
  - Swelling [Recovering/Resolving]

NARRATIVE: CASE EVENT DATE: 20220101
